FAERS Safety Report 9580254 (Version 1)
Quarter: 2013Q4

REPORT INFORMATION
  Report Type: Spontaneous
  Country: SE (occurrence: SE)
  Receive Date: 20131002
  Receipt Date: 20131002
  Transmission Date: 20140711
  Serious: Yes (Other)
  Sender: FDA-Public Use
  Company Number: SE-EISAI INC-E2020-12919-SPO-SE

PATIENT
  Age: 77 Year
  Sex: Female

DRUGS (3)
  1. ARICEPT [Suspect]
     Indication: DEMENTIA ALZHEIMER^S TYPE
     Route: 048
     Dates: start: 201202, end: 2013
  2. ARICEPT [Suspect]
     Dosage: DOSE REDUCED
     Route: 048
     Dates: start: 2013, end: 2013
  3. ARICEPT [Suspect]
     Dosage: UNKNOWN
     Route: 048
     Dates: start: 2013, end: 20130325

REACTIONS (9)
  - Tenosynovitis [Recovered/Resolved]
  - C-reactive protein increased [Recovered/Resolved]
  - Red blood cell sedimentation rate increased [Recovered/Resolved]
  - White blood cell count increased [Recovered/Resolved]
  - Blood alkaline phosphatase increased [Recovered/Resolved]
  - Musculoskeletal stiffness [Recovered/Resolved]
  - Pain [Recovered/Resolved]
  - Muscle spasms [Unknown]
  - Alanine aminotransferase increased [Recovered/Resolved]
